FAERS Safety Report 10762940 (Version 1)
Quarter: 2015Q1

REPORT INFORMATION
  Report Type: Spontaneous
  Country: IT (occurrence: IT)
  Receive Date: 20150204
  Receipt Date: 20150204
  Transmission Date: 20150721
  Serious: Yes (Hospitalization)
  Sender: FDA-Public Use
  Company Number: IT-WATSON-2015-01042

PATIENT
  Age: 56 Year
  Sex: Male

DRUGS (1)
  1. DIAZEPAM (UNKNOWN) [Suspect]
     Active Substance: DIAZEPAM
     Indication: ANXIETY
     Dosage: 100 GTT DROP(S), DAILY
     Route: 048
     Dates: start: 20040519, end: 20140519

REACTIONS (2)
  - Drug dependence [Recovering/Resolving]
  - Overdose [Recovering/Resolving]

NARRATIVE: CASE EVENT DATE: 20140519
